FAERS Safety Report 7596574-2 (Version None)
Quarter: 2011Q3

REPORT INFORMATION
  Report Type: 
  Country: None (occurrence: None)
  Receive Date: 20110708
  Receipt Date: 20110619
  Transmission Date: 20111222
  Serious: No
  Sender: FDA-Public Use
  Company Number: US-B.I. PHARMACEUTICALS,INC./RIDGEFIELD-2011-BP-15823BP

PATIENT
  Age: 81 Year
  Sex: Female

DRUGS (16)
  1. NITROGLYCERIN [Concomitant]
     Indication: CARDIAC DISORDER
     Route: 048
     Dates: start: 20010101
  2. DIGOXIN [Concomitant]
     Dosage: 0.125 MG
     Route: 048
  3. OXYCODONE HCL AND ACETAMINOPHEN [Concomitant]
     Route: 048
  4. LASIX [Concomitant]
     Indication: CARDIAC DISORDER
     Dosage: 80 MG
     Route: 048
  5. METOPROLOL TARTRATE [Concomitant]
     Indication: CARDIAC DISORDER
     Dosage: 200 MG
     Route: 048
     Dates: start: 20080101
  6. AMBIEN [Concomitant]
     Indication: SLEEP DISORDER
     Dosage: 6.5 MG
     Route: 048
  7. PRADAXA [Suspect]
     Indication: ATRIAL FIBRILLATION
     Dosage: 300 MG
     Route: 048
     Dates: start: 20110506
  8. CADUET [Concomitant]
     Indication: CARDIAC DISORDER
     Route: 048
     Dates: start: 20060101
  9. DIAZEPAM [Concomitant]
     Indication: ANXIETY
     Dosage: 15 MG
     Route: 048
  10. OMEPRAZOLE [Concomitant]
     Indication: CARDIAC DISORDER
     Dosage: 40 MG
     Route: 048
  11. LUNESTA [Concomitant]
     Indication: SLEEP DISORDER
     Dosage: 3 MG
     Route: 048
  12. REQUIP [Concomitant]
     Dosage: 20 MG
     Route: 048
  13. SYNTHROID [Concomitant]
     Indication: THYROID DISORDER
     Dosage: 125 MCG
     Route: 048
  14. POTASSIUM CHLORIDE [Concomitant]
     Indication: CARDIAC DISORDER
     Dosage: 20 MEQ
     Route: 048
  15. ASPIRIN [Concomitant]
     Indication: CARDIAC DISORDER
     Dosage: 81 MG
     Route: 048
  16. NEXIUM [Concomitant]
     Dosage: 40 MG
     Route: 048

REACTIONS (1)
  - HEADACHE [None]
